FAERS Safety Report 12825086 (Version 1)
Quarter: 2016Q4

REPORT INFORMATION
  Report Type: Report from Study
  Country: AU (occurrence: AU)
  Receive Date: 20161007
  Receipt Date: 20161007
  Transmission Date: 20170207
  Serious: Yes (Hospitalization)
  Sender: FDA-Public Use
  Company Number: AU-IPCA LABORATORIES LIMITED-IPC201609-000839

PATIENT

DRUGS (7)
  1. ACETYLSALICYLIC ACID [Suspect]
     Active Substance: ASPIRIN
  2. ATORVASTATIN [Suspect]
     Active Substance: ATORVASTATIN
  3. PARACETAMOL [Suspect]
     Active Substance: ACETAMINOPHEN
  4. METFORMIN HYDROCHLORIDE. [Suspect]
     Active Substance: METFORMIN HYDROCHLORIDE
  5. CODEINE-PARACETAMOL [Suspect]
     Active Substance: ACETAMINOPHEN\CODEINE PHOSPHATE
  6. MELOXICAM. [Suspect]
     Active Substance: MELOXICAM
  7. METOPROLOL TARTRATE. [Suspect]
     Active Substance: METOPROLOL TARTRATE

REACTIONS (1)
  - Drug-induced liver injury [Unknown]
